FAERS Safety Report 8639299 (Version 3)
Quarter: 2012Q4

REPORT INFORMATION
  Report Type: Report from Study
  Country: JP (occurrence: JP)
  Receive Date: 20120627
  Receipt Date: 20121210
  Transmission Date: 20130627
  Serious: Yes (Life-Threatening, Other)
  Sender: FDA-Public Use
  Company Number: JP-VERTEX PHARMACEUTICALS INC.-AE-2012-009136

PATIENT
  Age: 59 Year
  Sex: Female

DRUGS (5)
  1. VX-950 (TELAPREVIR) [Suspect]
     Indication: HEPATITIS C
     Dosage: 2250 mg, UNK
     Route: 048
     Dates: start: 20120604, end: 20120610
  2. VX-950 (TELAPREVIR) [Suspect]
     Dosage: 2250 mg, UNK
     Route: 048
     Dates: start: 20120619, end: 20120717
  3. RIBAVIRIN [Concomitant]
     Indication: CHRONIC HEPATITIS C
     Route: 048
     Dates: start: 20120604, end: 20120607
  4. RIBAVIRIN [Concomitant]
     Route: 048
     Dates: start: 20120608
  5. PEGINTERFERON ALFA-2B [Concomitant]
     Indication: CHRONIC HEPATITIS C
     Route: 058
     Dates: start: 20120604

REACTIONS (1)
  - Rash [Recovered/Resolved]
